FAERS Safety Report 9897298 (Version 2)
Quarter: 2014Q1

REPORT INFORMATION
  Report Type: Spontaneous
  Country: TW (occurrence: TW)
  Receive Date: 20140214
  Receipt Date: 20140214
  Transmission Date: 20141002
  Serious: Yes (Other)
  Sender: FDA-Public Use
  Company Number: TW-RANBAXY-2014RR-77576

PATIENT
  Age: 62 Year
  Sex: Male

DRUGS (10)
  1. QUETIAPINE [Suspect]
     Indication: HALLUCINATION, AUDITORY
     Dosage: 100 MG/DAY
     Route: 065
     Dates: start: 2012
  2. QUETIAPINE [Suspect]
     Indication: INSOMNIA
  3. QUETIAPINE [Suspect]
     Indication: HALLUCINATION, AUDITORY
     Dosage: 200 MG/DAY
     Route: 065
     Dates: start: 2012
  4. QUETIAPINE [Suspect]
     Indication: INSOMNIA
  5. RISPERIDONE [Interacting]
     Indication: BIPOLAR II DISORDER
     Dosage: 1 MG/DAY
     Route: 065
     Dates: start: 2012
  6. RISPERIDONE [Interacting]
     Indication: BIPOLAR II DISORDER
     Dosage: 4 MG/DAY
     Route: 065
     Dates: start: 2012
  7. BUPROPION [Interacting]
     Indication: BIPOLAR II DISORDER
     Dosage: 150 MG/DAY
     Route: 065
     Dates: start: 2012
  8. BUPROPION [Interacting]
     Indication: BIPOLAR II DISORDER
     Dosage: 300 MG/DAY
     Route: 065
     Dates: start: 2012
  9. LAMOTRIGINE [Concomitant]
     Indication: BIPOLAR II DISORDER
     Dosage: 25 MG/DAY
     Route: 065
     Dates: start: 2012
  10. LAMOTRIGINE [Concomitant]
     Indication: BIPOLAR II DISORDER
     Dosage: UP TO 75 MG/DAY
     Route: 065
     Dates: start: 2012

REACTIONS (6)
  - Delirium [Recovered/Resolved]
  - Drug interaction [Recovered/Resolved]
  - Dry mouth [Unknown]
  - Dry skin [Unknown]
  - Abdominal discomfort [Unknown]
  - Constipation [Unknown]
